FAERS Safety Report 9348291 (Version 1)
Quarter: 2013Q2

REPORT INFORMATION
  Report Type: Report from Study
  Country: US (occurrence: US)
  Receive Date: 20130614
  Receipt Date: 20130614
  Transmission Date: 20140414
  Serious: Yes (Other)
  Sender: FDA-Public Use
  Company Number: US-MYLANLABS-2013S1011959

PATIENT
  Age: 46 Year
  Sex: Female
  Weight: 99.79 kg

DRUGS (11)
  1. CLOZAPINE TABLETS [Suspect]
     Indication: SCHIZOPHRENIA, PARANOID TYPE
     Route: 048
     Dates: start: 20120418, end: 20130529
  2. CLOZAPINE TABLETS [Suspect]
     Indication: SCHIZOPHRENIA, PARANOID TYPE
     Route: 048
     Dates: start: 20120418, end: 20130529
  3. NORVASC [Concomitant]
  4. DEPAKOTE [Concomitant]
     Route: 048
  5. COLACE [Concomitant]
     Route: 048
  6. IRON [Concomitant]
  7. HCTZ [Concomitant]
     Route: 048
  8. LISINOPRIL [Concomitant]
  9. PROPRANOLOL [Concomitant]
     Route: 048
  10. RISPERDAL [Concomitant]
     Route: 048
  11. PROTONIX [Concomitant]
     Route: 048

REACTIONS (3)
  - Granulocytopenia [Recovered/Resolved]
  - Crying [Not Recovered/Not Resolved]
  - Nervousness [Not Recovered/Not Resolved]
